FAERS Safety Report 9503186 (Version 1)
Quarter: 2013Q3

REPORT INFORMATION
  Report Type: Spontaneous
  Country: US (occurrence: US)
  Receive Date: 20130906
  Receipt Date: 20130906
  Transmission Date: 20140515
  Serious: Yes (Other)
  Sender: FDA-Public Use
  Company Number: US-PFIZER INC-2013252080

PATIENT
  Age: 73 Year
  Sex: Female
  Weight: 90.7 kg

DRUGS (8)
  1. EPIPEN [Suspect]
     Indication: ARTHROPOD STING
     Dosage: 0.3 MG, 1X/DAY
     Route: 030
     Dates: start: 20130826, end: 20130826
  2. VERAPAMIL [Concomitant]
     Dosage: 240 MG, 1X/DAY
     Route: 048
  3. SIMVASTATIN [Concomitant]
     Dosage: 20 MG, 1X/DAY
     Route: 048
  4. LOSARTAN [Concomitant]
     Dosage: 50 MG, 1X/DAY
     Route: 048
  5. LYRICA [Concomitant]
     Dosage: 150 MG, 2X/DAY
     Route: 048
  6. ADVAIR [Concomitant]
     Dosage: 500/50 MG (1000/100MG) IN MORNING AND EVENING
     Route: 048
  7. PAROXETINE [Concomitant]
     Dosage: UNK
     Route: 048
  8. ALBUTEROL [Concomitant]
     Indication: ASTHMA
     Dosage: PRN
     Route: 048

REACTIONS (2)
  - Drug ineffective [Not Recovered/Not Resolved]
  - Product quality issue [Recovered/Resolved]
